FAERS Safety Report 7964493-5 (Version None)
Quarter: 2011Q4

REPORT INFORMATION
  Report Type: 
  Country: None (occurrence: None)
  Receive Date: 20111208
  Receipt Date: 20111129
  Transmission Date: 20120403
  Serious: Yes (Hospitalization)
  Sender: FDA-Public Use
  Company Number: US-US-EMD SERONO, INC.-7096371

PATIENT
  Sex: Male
  Weight: 91 kg

DRUGS (5)
  1. BACLOFEN [Concomitant]
     Indication: MUSCLE SPASTICITY
  2. GABAPENTIN [Concomitant]
     Indication: PARAESTHESIA
  3. CARDIZEM [Concomitant]
     Indication: CARDIAC DISORDER
  4. REBIF [Suspect]
     Indication: MULTIPLE SCLEROSIS
     Route: 058
     Dates: start: 20060331
  5. FLOMAX [Concomitant]

REACTIONS (5)
  - INJECTION SITE INFECTION [None]
  - INJECTION SITE INDURATION [None]
  - INJECTION SITE ERYTHEMA [None]
  - INJECTION SITE DISCOLOURATION [None]
  - INJECTION SITE HAEMATOMA [None]
